FAERS Safety Report 5083383-1 (Version None)
Quarter: 2006Q3

REPORT INFORMATION
  Report Type: 
  Country: None (occurrence: None)
  Receive Date: 20060816
  Receipt Date: 20060816
  Transmission Date: 20061208
  Serious: Yes (Death)
  Sender: FDA-Public Use
  Company Number: None

PATIENT
  Sex: Male
  Weight: 79.8331 kg

DRUGS (6)
  1. PEG-INTRON [Suspect]
     Indication: MALIGNANT MELANOMA
     Dosage: 43 MCG   WEEKLY   SC
     Route: 058
     Dates: start: 20060609
  2. PEG-INTRON [Suspect]
     Indication: MALIGNANT MELANOMA
     Dosage: 43 MCG   WEEKLY   SC
     Route: 058
     Dates: start: 20060616
  3. PEG-INTRON [Suspect]
     Indication: MALIGNANT MELANOMA
     Dosage: 43 MCG   WEEKLY   SC
     Route: 058
     Dates: start: 20060623
  4. PEG-INTRON [Suspect]
     Indication: MALIGNANT MELANOMA
     Dosage: 43 MCG   WEEKLY   SC
     Route: 058
     Dates: start: 20060701
  5. PEG-INTRON [Suspect]
     Indication: MALIGNANT MELANOMA
     Dosage: 43 MCG   WEEKLY   SC
     Route: 058
     Dates: start: 20060707
  6. PEG-INTRON [Suspect]
     Indication: MALIGNANT MELANOMA
     Dosage: 43 MCG   WEEKLY   SC
     Route: 058
     Dates: start: 20060714

REACTIONS (3)
  - DISEASE PROGRESSION [None]
  - PLEURAL EFFUSION [None]
  - PULMONARY EMBOLISM [None]
